FAERS Safety Report 5288781-9 (Version None)
Quarter: 2007Q2

REPORT INFORMATION
  Report Type: 
  Country: None (occurrence: None)
  Receive Date: 20070405
  Receipt Date: 20070323
  Transmission Date: 20071010
  Serious: Yes (Congenital Anomaly)
  Sender: FDA-Public Use
  Company Number: FR-ELI_LILLY_AND_COMPANY-FR200703004786

PATIENT

DRUGS (5)
  1. PROZAC [Suspect]
     Dosage: UNK, UNK
     Route: 064
     Dates: start: 20050701, end: 20051216
  2. SUBUTEX [Concomitant]
     Dosage: UNK, UNK
     Route: 064
     Dates: start: 20050701, end: 20051216
  3. SKENAN [Concomitant]
     Route: 064
     Dates: start: 20050701, end: 20051216
  4. RIVOTRIL [Concomitant]
     Route: 064
     Dates: start: 20050701, end: 20051216
  5. METHADONE HCL [Concomitant]
     Route: 064
     Dates: start: 20050701, end: 20051216

REACTIONS (5)
  - CONGENITAL FOOT MALFORMATION [None]
  - DRUG EXPOSURE DURING PREGNANCY [None]
  - DYSMORPHISM [None]
  - PULMONARY MALFORMATION [None]
  - SYNDACTYLY [None]
